FAERS Safety Report 10459111 (Version 1)
Quarter: 2014Q3

REPORT INFORMATION
  Report Type: Spontaneous
  Country: DE (occurrence: DE)
  Receive Date: 20140917
  Receipt Date: 20140917
  Transmission Date: 20150326
  Serious: Yes (Congenital Anomaly, Other)
  Sender: FDA-Public Use
  Company Number: DE-MERCK-1409DEU006685

PATIENT
  Age: 1 Day
  Sex: Male
  Weight: 3.37 kg

DRUGS (7)
  1. L-THYROXIN [Concomitant]
     Active Substance: LEVOTHYROXINE SODIUM
     Indication: AUTOIMMUNE THYROIDITIS
     Dosage: 75 [MICROGRAM/D]
     Route: 064
     Dates: start: 20130310, end: 20131113
  2. METOPROLOL [Concomitant]
     Active Substance: METOPROLOL
     Indication: HYPERTENSION
     Dosage: 95[MG/D(2X47.5MG/D)]
     Route: 064
     Dates: start: 20130502, end: 20131113
  3. METHYLDOPA. [Concomitant]
     Active Substance: METHYLDOPA
     Indication: HYPERTENSION
     Dosage: 1000[MG/D(4X250MG/D)]
     Route: 064
     Dates: start: 20130502, end: 20131113
  4. VITAVERLAN [Concomitant]
     Indication: PROPHYLAXIS OF NEURAL TUBE DEFECT
     Dosage: 0.4 MG, QD
     Route: 064
  5. JANUVIA [Suspect]
     Active Substance: SITAGLIPTIN PHOSPHATE
     Indication: TYPE 2 DIABETES MELLITUS
     Dosage: ^100[MG/D]^{100 G GRAM(S), 1 IN 1 DAY}
     Route: 064
     Dates: start: 20130310, end: 20130425
  6. METFORMIN [Suspect]
     Active Substance: METFORMIN HYDROCHLORIDE
     Indication: TYPE 2 DIABETES MELLITUS
     Dosage: 2000[MG/D], 1000MG, BID
     Route: 064
     Dates: start: 20130310, end: 20130425
  7. RAMIPRIL. [Suspect]
     Active Substance: RAMIPRIL
     Indication: HYPERTENSION
     Dosage: 10 [MG/D]
     Route: 064
     Dates: start: 20130310, end: 20130425

REACTIONS (3)
  - Large for dates baby [Recovering/Resolving]
  - Diabetic foetopathy [Recovered/Resolved]
  - Atrial septal defect [Unknown]

NARRATIVE: CASE EVENT DATE: 20131113
